FAERS Safety Report 5236426-6 (Version None)
Quarter: 2007Q1

REPORT INFORMATION
  Report Type: 
  Country: None (occurrence: None)
  Receive Date: 20070212
  Receipt Date: 20070204
  Transmission Date: 20070707
  Serious: Yes (Other)
  Sender: FDA-Public Use
  Company Number: US-PFIZER INC-2007009789

PATIENT
  Sex: Male
  Weight: 86.2 kg

DRUGS (9)
  1. CHANTIX [Suspect]
     Indication: EX-SMOKER
     Route: 048
     Dates: start: 20070110, end: 20070101
  2. FLUOXETINE [Concomitant]
     Route: 048
  3. OXYCONTIN [Concomitant]
     Indication: ARTHRALGIA
     Dosage: FREQ:AS NEEDED
     Route: 048
  4. BUTALBITAL, ACETAMINOPHEN, CAFFEINE [Concomitant]
     Indication: HEADACHE
     Dosage: FREQ:AS NEEDED
     Route: 048
  5. NAPROSYN [Concomitant]
     Indication: ARTHRALGIA
     Route: 048
  6. LIPITOR [Concomitant]
     Dosage: TEXT:10MG-FREQ:DAILY
     Route: 048
  7. TRICOR [Concomitant]
     Dosage: TEXT:150MG-FREQ:DAILY
     Route: 048
  8. WELLBUTRIN [Concomitant]
     Route: 048
  9. LISINOPRIL [Concomitant]
     Dosage: TEXT:10MG-FREQ:DAILY
     Route: 048

REACTIONS (4)
  - EAR DISCOMFORT [None]
  - EAR PAIN [None]
  - HYPOACUSIS [None]
  - MENIERE'S DISEASE [None]
